FAERS Safety Report 14019669 (Version 1)
Quarter: 2017Q3

REPORT INFORMATION
  Report Type: Spontaneous
  Country: US (occurrence: US)
  Receive Date: 20170928
  Receipt Date: 20170928
  Transmission Date: 20171128
  Serious: Yes (Other)
  Sender: FDA-Public Use
  Company Number: US-PFIZER INC-2017417424

PATIENT
  Age: 43 Year
  Sex: Female

DRUGS (2)
  1. NEURONTIN [Suspect]
     Active Substance: GABAPENTIN
     Dosage: UNK
     Dates: start: 200304
  2. DURAGESIC [Concomitant]
     Active Substance: FENTANYL
     Dosage: 50MCG PATCH APPLIED BIWEEKLY

REACTIONS (5)
  - Myocardial infarction [Unknown]
  - Anger [Unknown]
  - Feeling abnormal [Unknown]
  - Coma [Unknown]
  - Head injury [Unknown]

NARRATIVE: CASE EVENT DATE: 20040117
